FAERS Safety Report 11798802 (Version 2)
Quarter: 2015Q4

REPORT INFORMATION
  Report Type: Report from Study
  Country: AU (occurrence: NZ)
  Receive Date: 20151203
  Receipt Date: 20151211
  Transmission Date: 20160305
  Serious: Yes (Other)
  Sender: FDA-Public Use
  Company Number: AU-REGENERON PHARMACEUTICALS, INC.-2015-14290

PATIENT

DRUGS (5)
  1. PREDNISONE. [Concomitant]
     Active Substance: PREDNISONE
     Dosage: 20 MG, UNK
     Dates: start: 201511
  2. EYLEA [Suspect]
     Active Substance: AFLIBERCEPT
     Indication: MACULAR DEGENERATION
     Dosage: BILATERAL TREATMENT EVERY TWO MONTHS
     Dates: start: 20150923, end: 20150923
  3. EYLEA [Suspect]
     Active Substance: AFLIBERCEPT
     Dosage: BILATERAL INJECTIONS
     Dates: start: 20150831, end: 20150831
  4. PREDNISONE. [Concomitant]
     Active Substance: PREDNISONE
     Dosage: 40 MG, UNK
     Dates: start: 201511
  5. EYLEA [Suspect]
     Active Substance: AFLIBERCEPT
     Dosage: BILATERAL INJECTIONS
     Dates: start: 20150803, end: 20150803

REACTIONS (5)
  - Visual impairment [Unknown]
  - Colour blindness [Unknown]
  - Drug ineffective [Unknown]
  - Visual impairment [Unknown]
  - Retinal oedema [Unknown]

NARRATIVE: CASE EVENT DATE: 20151123
